FAERS Safety Report 10468727 (Version 3)
Quarter: 2014Q4

REPORT INFORMATION
  Report Type: Spontaneous
  Country: JP (occurrence: JP)
  Receive Date: 20140922
  Receipt Date: 20141002
  Transmission Date: 20150528
  Serious: Yes (Life-Threatening)
  Sender: FDA-Public Use
  Company Number: PHHY2012JP108289

PATIENT
  Age: 6 Year
  Sex: Female
  Weight: 23 kg

DRUGS (8)
  1. CICLOSPORIN [Suspect]
     Active Substance: CYCLOSPORINE
     Dosage: 40 MG, DAILY
     Route: 048
     Dates: start: 20111206
  2. NITROPRUSSIDE [Concomitant]
     Active Substance: NITROPRUSSIDE
  3. PREDNISOLONE. [Suspect]
     Active Substance: PREDNISOLONE
     Indication: NEPHROTIC SYNDROME
     Dosage: 2.5 MG, QD
     Route: 048
     Dates: start: 2009
  4. SELBEX [Concomitant]
     Active Substance: TEPRENONE
     Dosage: 50 MG, UNK
     Route: 048
     Dates: start: 20111102
  5. SHINLUCK [Concomitant]
     Indication: CONSTIPATION
     Dosage: 21 ML, UNK
     Route: 048
     Dates: start: 20111006, end: 20111102
  6. CICLOSPORIN [Suspect]
     Active Substance: CYCLOSPORINE
     Indication: NEPHROTIC SYNDROME
     Dosage: 0.8 ML, DAILY
     Dates: start: 2009, end: 20111102
  7. PRAZOSIN [Concomitant]
     Active Substance: PRAZOSIN
  8. SAIREI-TO [Concomitant]
     Active Substance: UNSPECIFIED INGREDIENT
     Dosage: 9 MG, UNK
     Route: 048
     Dates: start: 20111102

REACTIONS (7)
  - Nystagmus [Recovered/Resolved]
  - Somnolence [Recovered/Resolved]
  - Hypertension [Recovered/Resolved]
  - Posterior reversible encephalopathy syndrome [Recovered/Resolved]
  - Dysphagia [Recovered/Resolved]
  - Altered state of consciousness [Recovered/Resolved]
  - Respiratory arrest [Recovered/Resolved]

NARRATIVE: CASE EVENT DATE: 20111102
